FAERS Safety Report 24437844 (Version 2)
Quarter: 2024Q4

REPORT INFORMATION
  Report Type: Spontaneous
  Country: JP (occurrence: JP)
  Receive Date: 20241015
  Receipt Date: 20241024
  Transmission Date: 20250115
  Serious: Yes (Other)
  Sender: BOEHRINGER INGELHEIM
  Company Number: JP-NBI-2024-BI-056896

PATIENT
  Age: 76 Year
  Sex: Male

DRUGS (7)
  1. JARDIANCE [Suspect]
     Active Substance: EMPAGLIFLOZIN
     Indication: Cardiac failure
     Route: 048
     Dates: start: 20240525, end: 20241018
  2. BISOPROLOL [Concomitant]
     Active Substance: BISOPROLOL\BISOPROLOL FUMARATE
     Indication: Cardiac failure
     Dosage: 5
     Route: 048
     Dates: start: 202103
  3. FENOFIBRATE [Concomitant]
     Active Substance: FENOFIBRATE
     Indication: Product used for unknown indication
     Dosage: 80
     Route: 048
     Dates: start: 202103
  4. ENALAPRIL MALEATE [Concomitant]
     Active Substance: ENALAPRIL MALEATE
     Indication: Cardiac failure
     Dosage: 5
     Route: 048
     Dates: start: 202103
  5. RIVAROXABAN [Concomitant]
     Active Substance: RIVAROXABAN
     Indication: Cerebrovascular accident
     Dosage: 10
     Route: 048
     Dates: start: 202103
  6. DUTASTERIDE [Concomitant]
     Active Substance: DUTASTERIDE
     Indication: Benign prostatic hyperplasia
     Dosage: 0.5
     Route: 048
     Dates: start: 202103
  7. KETOPROFEN [Concomitant]
     Active Substance: KETOPROFEN
     Indication: Inflammation
     Dosage: COMPRESS. APPLIED AS PATCH. DAILY DOSE-40
     Dates: start: 202103

REACTIONS (2)
  - Urinary retention [Unknown]
  - Dysuria [Unknown]
